FAERS Safety Report 6875673-4 (Version None)
Quarter: 2010Q3

REPORT INFORMATION
  Report Type: 
  Country: None (occurrence: None)
  Receive Date: 20100727
  Receipt Date: 20080211
  Transmission Date: 20110219
  Serious: Yes (Hospitalization, Other)
  Sender: FDA-Public Use
  Company Number: US-PFIZER INC-2006093162

PATIENT
  Sex: Male

DRUGS (2)
  1. CELEBREX [Suspect]
     Indication: POLYMYALGIA RHEUMATICA
     Dates: start: 20010401
  2. CELEBREX [Suspect]
     Indication: OSTEOARTHRITIS

REACTIONS (3)
  - CEREBROVASCULAR ACCIDENT [None]
  - ERECTILE DYSFUNCTION [None]
  - INTESTINAL FUNCTIONAL DISORDER [None]
